FAERS Safety Report 15957814 (Version 2)
Quarter: 2020Q3

REPORT INFORMATION
  Report Type: Report from Study
  Country: TW (occurrence: TW)
  Receive Date: 20190213
  Receipt Date: 20190311
  Transmission Date: 20201104
  Serious: Yes (Hospitalization)
  Sender: FDA-Public Use
  Company Number: TW-JNJFOC-20180436991

PATIENT
  Age: 27 Year
  Sex: Female
  Weight: 69.4 kg

DRUGS (2)
  1. USTEKINUMAB [Suspect]
     Active Substance: USTEKINUMAB
     Indication: SYSTEMIC LUPUS ERYTHEMATOSUS
     Route: 058
     Dates: end: 20180207
  2. USTEKINUMAB [Suspect]
     Active Substance: USTEKINUMAB
     Indication: SYSTEMIC LUPUS ERYTHEMATOSUS
     Route: 058
     Dates: start: 20160530

REACTIONS (3)
  - Posterior reversible encephalopathy syndrome [Recovered/Resolved]
  - Systemic lupus erythematosus [Recovered/Resolved]
  - Lupus nephritis [Recovered/Resolved]

NARRATIVE: CASE EVENT DATE: 20180402
